FAERS Safety Report 14416917 (Version 8)
Quarter: 2018Q2

REPORT INFORMATION
  Report Type: Spontaneous
  Country: US (occurrence: US)
  Receive Date: 20180122
  Receipt Date: 20180621
  Transmission Date: 20180711
  Serious: Yes (Other)
  Sender: FDA-Public Use
  Company Number: US-PFIZER INC-2018022068

PATIENT
  Age: 73 Year
  Sex: Female
  Weight: 59 kg

DRUGS (3)
  1. IBRANCE [Suspect]
     Active Substance: PALBOCICLIB
     Indication: BREAST CANCER METASTATIC
     Dosage: 125 MG, CYCLIC (21 DAYS AND THEN OFF FOR 7 DAYS)
     Route: 048
     Dates: start: 201712
  2. FASLODEX [Suspect]
     Active Substance: FULVESTRANT
     Indication: BREAST CANCER METASTATIC
     Dosage: UNK UNK, MONTHLY
     Route: 030
  3. AREDIA [Concomitant]
     Active Substance: PAMIDRONATE DISODIUM
     Indication: BREAST CANCER METASTATIC
     Dosage: UNK, EVERY 3 MONTHS
     Route: 042

REACTIONS (7)
  - Deafness [Not Recovered/Not Resolved]
  - Neck pain [Unknown]
  - Condition aggravated [Not Recovered/Not Resolved]
  - Feeling abnormal [Unknown]
  - White blood cell count decreased [Recovering/Resolving]
  - Feeling cold [Unknown]
  - Product use in unapproved indication [Unknown]

NARRATIVE: CASE EVENT DATE: 20171228
